FAERS Safety Report 4371656-7 (Version None)
Quarter: 2004Q2

REPORT INFORMATION
  Report Type: 
  Country: None (occurrence: None)
  Receive Date: 20040603
  Receipt Date: 20040603
  Transmission Date: 20050107
  Serious: No
  Sender: FDA-Public Use
  Company Number: None

PATIENT

DRUGS (1)
  1. OGEN [Suspect]
     Indication: HORMONE REPLACEMENT THERAPY

REACTIONS (1)
  - MEDICATION ERROR [None]
